FAERS Safety Report 5893871-3 (Version None)
Quarter: 2008Q3

REPORT INFORMATION
  Report Type: 
  Country: None (occurrence: None)
  Receive Date: 20080923
  Receipt Date: 20080616
  Transmission Date: 20090109
  Serious: No
  Sender: FDA-Public Use
  Company Number: US-ASTRAZENECA-2007UW26654

PATIENT
  Age: 436 Month
  Sex: Male
  Weight: 120.5 kg

DRUGS (6)
  1. SEROQUEL [Suspect]
     Indication: INSOMNIA
     Route: 048
     Dates: start: 20040501, end: 20061001
  2. SEROQUEL [Suspect]
     Route: 048
     Dates: start: 20040501, end: 20061001
  3. ZYPREXA [Concomitant]
     Dates: start: 20040501
  4. WELLBUTRIN [Concomitant]
     Dates: start: 20040501
  5. TRILEPTAL [Concomitant]
     Dates: start: 20040501
  6. DEPAKOTE [Concomitant]
     Dates: start: 20040501

REACTIONS (10)
  - ARTHRALGIA [None]
  - BLOOD CHOLESTEROL INCREASED [None]
  - BLOOD TRIGLYCERIDES INCREASED [None]
  - DIABETES MELLITUS [None]
  - ERECTILE DYSFUNCTION [None]
  - FATIGUE [None]
  - HYPERTENSION [None]
  - OBESITY [None]
  - SWELLING [None]
  - WEIGHT INCREASED [None]
